FAERS Safety Report 5475236-1 (Version None)
Quarter: 2007Q4

REPORT INFORMATION
  Report Type: 
  Country: None (occurrence: None)
  Receive Date: 20071002
  Receipt Date: 20070920
  Transmission Date: 20080405
  Serious: Yes (Other)
  Sender: FDA-Public Use
  Company Number: US-PFIZER INC-2007080157

PATIENT
  Sex: Female

DRUGS (8)
  1. RELPAX [Suspect]
     Indication: MIGRAINE
  2. REBIF [Suspect]
     Indication: MULTIPLE SCLEROSIS
     Route: 058
     Dates: start: 20060314, end: 20070301
  3. SEROQUEL [Suspect]
     Indication: INSOMNIA
  4. PROVIGIL [Suspect]
     Indication: FATIGUE
  5. VESICARE [Suspect]
     Indication: BLADDER DISORDER
  6. BACLOFEN [Suspect]
     Indication: MUSCLE SPASMS
  7. MINOCYCLINE HCL [Suspect]
     Indication: SWEAT GLAND INFECTION
  8. CELEXA [Suspect]
     Indication: DEPRESSION

REACTIONS (1)
  - ABORTION SPONTANEOUS [None]
